FAERS Safety Report 19632989 (Version 3)
Quarter: 2021Q3

REPORT INFORMATION
  Report Type: Report from Study
  Country: CA (occurrence: CA)
  Receive Date: 20210730
  Receipt Date: 20210924
  Transmission Date: 20211014
  Serious: Yes (Other)
  Sender: FDA-Public Use
  Company Number: CA-JNJFOC-20210755900

PATIENT
  Age: 15 Year
  Sex: Female
  Weight: 67.5 kg

DRUGS (1)
  1. REMICADE [Suspect]
     Active Substance: INFLIXIMAB
     Indication: COLITIS ULCERATIVE
     Dosage: ADDITIONAL THERAPY START DATE ? 24?JAN?2021
     Route: 042
     Dates: start: 20200710

REACTIONS (4)
  - Fatigue [Recovered/Resolved]
  - Frequent bowel movements [Not Recovered/Not Resolved]
  - Haematochezia [Recovered/Resolved]
  - Abdominal pain [Not Recovered/Not Resolved]

NARRATIVE: CASE EVENT DATE: 20210717
